FAERS Safety Report 10010642 (Version 1)
Quarter: 2014Q1

REPORT INFORMATION
  Report Type: Spontaneous
  Country: US (occurrence: US)
  Receive Date: 20140314
  Receipt Date: 20140314
  Transmission Date: 20141002
  Serious: Yes (Hospitalization)
  Sender: FDA-Public Use
  Company Number: US-CELGENEUS-163-POMAL-14030482

PATIENT
  Age: 69 Year
  Sex: Male

DRUGS (1)
  1. POMALYST [Suspect]
     Indication: PLASMA CELL MYELOMA
     Dosage: 4 MILLIGRAM
     Route: 048
     Dates: start: 20140201, end: 20140213

REACTIONS (6)
  - Speech disorder [Unknown]
  - Balance disorder [Unknown]
  - Gait disturbance [Unknown]
  - Confusional state [Unknown]
  - Asthenia [Unknown]
  - Pain [Unknown]
